FAERS Safety Report 6719591-0 (Version None)
Quarter: 2010Q2

REPORT INFORMATION
  Report Type: 
  Country: None (occurrence: None)
  Receive Date: 20100511
  Receipt Date: 20100503
  Transmission Date: 20101027
  Serious: Yes (Other)
  Sender: FDA-Public Use
  Company Number: AU-B.I. PHARMACEUTICALS,INC./RIDGEFIELD-2010-AU-00256AU

PATIENT
  Sex: Female
  Weight: 101 kg

DRUGS (6)
  1. MOBIC [Suspect]
     Indication: OSTEOARTHRITIS
     Dosage: 15 MG
     Dates: start: 20061101, end: 20100310
  2. ATACAND HCT [Concomitant]
     Dosage: 16/12.5MG
  3. LEXAPRO [Concomitant]
  4. ATENOLOL [Concomitant]
  5. ZANIDIP [Concomitant]
  6. IMOVANE [Concomitant]

REACTIONS (1)
  - MELAENA [None]
